FAERS Safety Report 4815395-4 (Version None)
Quarter: 2005Q4

REPORT INFORMATION
  Report Type: 
  Country: None (occurrence: None)
  Receive Date: 20051027
  Receipt Date: 20051014
  Transmission Date: 20060501
  Serious: Yes (Other)
  Sender: FDA-Public Use
  Company Number: 2005099185

PATIENT
  Age: 49 Year
  Sex: Male

DRUGS (3)
  1. LIPITOR [Suspect]
     Indication: HYPERLIPIDAEMIA
     Dosage: 20 MG (20 MG, 1 IN 1 D), ORAL
     Route: 048
     Dates: end: 20050714
  2. VIAGRA [Concomitant]
  3. CIALIS [Concomitant]

REACTIONS (5)
  - BACK PAIN [None]
  - CORONARY ARTERY DISEASE [None]
  - ERYTHEMA [None]
  - HYPERHIDROSIS [None]
  - MYALGIA [None]
